FAERS Safety Report 9644085 (Version 2)
Quarter: 2013Q4

REPORT INFORMATION
  Report Type: Spontaneous
  Country: US (occurrence: US)
  Receive Date: 20131024
  Receipt Date: 20131226
  Transmission Date: 20140711
  Serious: Yes (Other)
  Sender: FDA-Public Use
  Company Number: US-OTSUKA-US-2013-11973

PATIENT
  Age: 55 Year
  Sex: Female
  Weight: 226.76 kg

DRUGS (3)
  1. ABILIFY MAINTENA [Suspect]
     Indication: SCHIZOAFFECTIVE DISORDER
     Dosage: 300 MG MILLIGRAM(S), QM
     Route: 030
     Dates: start: 20130923
  2. ABILIFY [Concomitant]
     Indication: SCHIZOAFFECTIVE DISORDER
     Dosage: 5 MG MILLIGRAM(S), UNK
     Route: 048
     Dates: end: 20131010
  3. REMERON [Concomitant]
     Indication: DEPRESSION
     Dosage: 15 MG MILLIGRAM(S), HS

REACTIONS (4)
  - Confusional state [Unknown]
  - Incorrect route of drug administration [Unknown]
  - Memory impairment [Unknown]
  - Off label use [Unknown]
